FAERS Safety Report 7576480-X (Version None)
Quarter: 2011Q2

REPORT INFORMATION
  Report Type: 
  Country: None (occurrence: None)
  Receive Date: 20110628
  Receipt Date: 20090112
  Transmission Date: 20111010
  Serious: Yes (Death, Other)
  Sender: FDA-Public Use
  Company Number: US-BAYER-200910286NA

PATIENT
  Age: 74 Year
  Sex: Male
  Weight: 73 kg

DRUGS (24)
  1. ACETYLSALICYLIC ACID SRT [Concomitant]
     Dosage: 81 MG, UNK
     Route: 048
     Dates: end: 20040114
  2. CALCIUM CARBONATE [Concomitant]
     Dosage: 500 MG, QD
     Route: 048
     Dates: end: 20040114
  3. PROTAMINE SULFATE [Concomitant]
     Dosage: 216 MG, UNK
     Route: 042
     Dates: start: 20040115, end: 20040115
  4. ANCEF [Concomitant]
     Dosage: 1 GM, UNK
     Route: 042
     Dates: start: 20040115, end: 20040125
  5. FENTANYL [Concomitant]
     Dosage: 70 ML, UNK
     Route: 042
     Dates: start: 20040115, end: 20040115
  6. TRASYLOL [Suspect]
     Dosage: 50 MLS PER HOUR UNTIL 1600
     Route: 042
     Dates: start: 20040115, end: 20040115
  7. PREVACID [Concomitant]
     Dosage: 30 MG, QD
     Route: 048
     Dates: end: 20040114
  8. PAXIL [Concomitant]
     Dosage: 20 MG, QD
     Route: 048
     Dates: end: 20040114
  9. HEPARIN [Concomitant]
     Dosage: 30,000 UNITS, UNK
     Route: 042
     Dates: start: 20040114, end: 20040114
  10. VERSED [Concomitant]
     Dosage: 1 MG, UNK
     Route: 042
     Dates: start: 20040114, end: 20040114
  11. NIPRIDE [Concomitant]
     Dosage: 4 MCG THEN TITRATED, UNK
     Route: 042
     Dates: start: 20040115, end: 20040115
  12. PAPAVERINE [Concomitant]
     Dosage: 60 MG, UNK
     Route: 042
     Dates: start: 20040115, end: 20040115
  13. ETOMIDATE [Concomitant]
     Dosage: UNK
     Route: 042
     Dates: start: 20040115, end: 20040115
  14. TRASYLOL [Suspect]
     Indication: AORTIC VALVE REPLACEMENT
     Dosage: 150 ML BOLUS, UNK
     Route: 040
     Dates: start: 20040115, end: 20040115
  15. FENTANYL [Concomitant]
     Dosage: 25 MCG, UNK
     Route: 042
     Dates: start: 20040114, end: 20040114
  16. PRAVACHOL [Concomitant]
     Dosage: 40 MG, QD
     Dates: end: 20040114
  17. TRASYLOL [Suspect]
     Indication: PRODUCT USED FOR UNKNOWN INDICATION
     Dosage: 1 ML, UNK
     Route: 042
     Dates: start: 20040115, end: 20040115
  18. TRASYLOL [Suspect]
     Dosage: 250 ML BOLUS, UNK
     Route: 040
     Dates: start: 20040115, end: 20040115
  19. LASIX [Concomitant]
     Dosage: 20 MG, UNK
     Route: 048
     Dates: end: 20040114
  20. MOBIC [Concomitant]
     Dosage: 7.5 MG, PRN
     Route: 048
     Dates: end: 20040114
  21. ATENOLOL [Concomitant]
     Dosage: 25 MG, UNK
     Route: 048
     Dates: start: 20040114, end: 20040115
  22. VERSED [Concomitant]
     Dosage: 4 MG, UNK
     Route: 042
     Dates: start: 20040115, end: 20040115
  23. HEPARIN [Concomitant]
     Dosage: 3000 UNITS, UNK
     Route: 042
     Dates: start: 20040114, end: 20040114
  24. BLOOD AND RELATED PRODUCTS [Concomitant]
     Dosage: 2 U, UNK
     Dates: start: 20040115

REACTIONS (12)
  - RENAL INJURY [None]
  - EMOTIONAL DISTRESS [None]
  - STRESS [None]
  - PAIN [None]
  - UNEVALUABLE EVENT [None]
  - ANXIETY [None]
  - ANHEDONIA [None]
  - DEATH [None]
  - RENAL FAILURE [None]
  - RENAL IMPAIRMENT [None]
  - FEAR [None]
  - INJURY [None]
